FAERS Safety Report 19148722 (Version 2)
Quarter: 2021Q2

REPORT INFORMATION
  Report Type: Spontaneous
  Country: NL (occurrence: NL)
  Receive Date: 20210417
  Receipt Date: 20210422
  Transmission Date: 20210717
  Serious: Yes (Hospitalization)
  Sender: FDA-Public Use
  Company Number: NL-SUN PHARMACEUTICAL INDUSTRIES LTD-2021RR-291847

PATIENT
  Sex: Male
  Weight: 80 kg

DRUGS (11)
  1. ROSUVASTATINE [Suspect]
     Active Substance: ROSUVASTATIN
     Indication: LOW DENSITY LIPOPROTEIN INCREASED
     Dosage: 40 MILLIGRAM, DAILY, 1X PER DAG 1 STUK
     Route: 065
     Dates: start: 20200326, end: 20210114
  2. LEVOCETIRIZINE TABLET FO 5MG / BRAND NAME NOT SPECIFIEDLEVOCETIRIZI... [Concomitant]
     Indication: PRODUCT USED FOR UNKNOWN INDICATION
     Dosage: 5 MILLIGRAM, DAILY, 1 X PER DAG 1 STUK
     Route: 065
  3. METFORMINE TABLET   500MG / BRAND NAME NOT SPECIFIEDMETFORMINE TABL... [Concomitant]
     Indication: PRODUCT USED FOR UNKNOWN INDICATION
     Dosage: 1000 MILLIGRAM, BID, 2 X PER DAG 2 STUKS
     Route: 065
  4. TIOTROPIUM INHALATIECAPSULE 18UG / BRAND NAME NOT SPECIFIEDTIOTROPI... [Concomitant]
     Indication: PRODUCT USED FOR UNKNOWN INDICATION
     Dosage: 18 MICROGRAM, DAILY, 1 X PER DAG 1 STUK
     Route: 065
  5. THIAMINE TABLET  50MG / BRAND NAME NOT SPECIFIEDTHIAMINE TABLET  50MG [Concomitant]
     Indication: PRODUCT USED FOR UNKNOWN INDICATION
     Dosage: 50 MILLIGRAM, DAILY, 1 X PER DAG 1 STUK
     Route: 065
  6. ACENOCOUMAROL TABLET 1MG / BRAND NAME NOT SPECIFIEDACENOCOUMAROL TA... [Concomitant]
     Indication: PRODUCT USED FOR UNKNOWN INDICATION
     Dosage: VOLGENS SCHEMA ()
     Route: 065
  7. VITAMINE B COMPLEX TABLET (1) ? NON?CURRENT DRUG / BRAND NAME NOT S... [Concomitant]
     Indication: PRODUCT USED FOR UNKNOWN INDICATION
     Dosage: 1 X PER DAG 1 STUK ()
     Route: 065
  8. KALIUMCHLORIDE DRANK 75MG/ML (1MMOL/ML) / BRAND NAME NOT SPECIFIEDK... [Concomitant]
     Indication: PRODUCT USED FOR UNKNOWN INDICATION
     Dosage: 30 MILLIGRAM, BID, 2 X PER DAG 30 MILLILITER
     Route: 065
  9. BECLOMETASON/FORMOTEROL INHALATIEPOEDER 200/6UG/DO / BRAND NAME NOT... [Concomitant]
     Indication: PRODUCT USED FOR UNKNOWN INDICATION
     Dosage: 2 DOSAGE FORM, BID, 2 X PER DAG 2 DOSIS
     Route: 065
  10. ASCORBINEZUUR TABLET 500MG / BRAND NAME NOT SPECIFIEDASCORBINEZUUR ... [Concomitant]
     Indication: PRODUCT USED FOR UNKNOWN INDICATION
     Dosage: 500 MILLIGRAM, DAILY, 1 X PER DAG 1 STUK
     Route: 065
  11. PANTOPRAZOL TABLET MSR 20MG / BRAND NAME NOT SPECIFIEDPANTOPRAZOL T... [Concomitant]
     Indication: PRODUCT USED FOR UNKNOWN INDICATION
     Dosage: 20 MILLIGRAM, DAILY, 1 X PER DAG 1 STUK
     Route: 065

REACTIONS (1)
  - Renal tubular necrosis [Not Recovered/Not Resolved]
